FAERS Safety Report 23292810 (Version 2)
Quarter: 2024Q1

REPORT INFORMATION
  Report Type: Spontaneous
  Country: US (occurrence: US)
  Receive Date: 20231213
  Receipt Date: 20240202
  Transmission Date: 20240409
  Serious: Yes (Other)
  Sender: FDA-Public Use
  Company Number: US-BAYER-2023A176298

PATIENT
  Age: 73 Year
  Sex: Male

DRUGS (1)
  1. NUBEQA [Suspect]
     Active Substance: DAROLUTAMIDE
     Dosage: UNK

REACTIONS (6)
  - Poisoning [Not Recovered/Not Resolved]
  - Sinonasal obstruction [Not Recovered/Not Resolved]
  - Dyspnoea [Not Recovered/Not Resolved]
  - Rhinalgia [Not Recovered/Not Resolved]
  - Nasal oedema [Not Recovered/Not Resolved]
  - Nasal dryness [Not Recovered/Not Resolved]

NARRATIVE: CASE EVENT DATE: 20230101
